FAERS Safety Report 18581720 (Version 1)
Quarter: 2020Q4

REPORT INFORMATION
  Report Type: Other
  Country: MY (occurrence: MY)
  Receive Date: 20201205
  Receipt Date: 20201205
  Transmission Date: 20210114
  Serious: Yes (Hospitalization)
  Sender: FDA-Public Use
  Company Number: MY-ENCUBE-000021

PATIENT
  Age: 26 Year
  Sex: Male

DRUGS (2)
  1. CILASTATIN/IMIPEN [Suspect]
     Active Substance: CILASTATIN SODIUM\IMIPENEM
     Indication: PSEUDOMONAS INFECTION
     Dosage: 500 MG EVERY 6 HOURS
     Route: 042
  2. CLINDAMYCIN. [Suspect]
     Active Substance: CLINDAMYCIN
     Indication: PSEUDOMONAS INFECTION
     Dosage: 900 MG EVERY 8 HOUR

REACTIONS (2)
  - Condition aggravated [Unknown]
  - Incorrect dose administered [Unknown]
